FAERS Safety Report 9383445 (Version 1)
Quarter: 2013Q3

REPORT INFORMATION
  Report Type: Spontaneous
  Country: DE (occurrence: DE)
  Receive Date: 20130704
  Receipt Date: 20130704
  Transmission Date: 20140515
  Serious: Yes (Other)
  Sender: FDA-Public Use
  Company Number: DE-ASTRAZENECA-2013SE49494

PATIENT
  Sex: Male
  Weight: 3.7 kg

DRUGS (3)
  1. SEROQUEL [Suspect]
     Indication: PSYCHOTIC DISORDER
     Dosage: INITIAL 600 MG/DAY, REDUCED TO 400 MG/DAY, LONG TERM EXPOSURE
     Route: 064
  2. LAMICTAL [Suspect]
     Indication: EPILEPSY
     Dosage: INITIAL 100 MG/D, INCREASED TO 200 MG/D, UNKNOWN WHEN
     Route: 064
  3. FOLIC ACID [Concomitant]
     Indication: PROPHYLAXIS OF NEURAL TUBE DEFECT
     Route: 064

REACTIONS (1)
  - Neonatal respiratory distress syndrome [Unknown]
